FAERS Safety Report 10169510 (Version 1)
Quarter: 2014Q2

REPORT INFORMATION
  Report Type: Spontaneous
  Country: US (occurrence: US)
  Receive Date: 20140513
  Receipt Date: 20140513
  Transmission Date: 20141212
  Serious: Yes (Hospitalization, Disabling, Other)
  Sender: FDA-Public Use
  Company Number: US-ASTRAZENECA-2014SE30992

PATIENT
  Age: 45 Year
  Sex: Female
  Weight: 137.9 kg

DRUGS (2)
  1. NEXIUM [Suspect]
     Indication: GASTROOESOPHAGEAL REFLUX DISEASE
     Route: 048
     Dates: start: 2002, end: 201404
  2. MORPHINE [Suspect]
     Route: 065

REACTIONS (16)
  - Fibromyalgia [Unknown]
  - Arthritis [Unknown]
  - Intervertebral disc degeneration [Unknown]
  - Pain [Unknown]
  - Liver disorder [Unknown]
  - Throat irritation [Unknown]
  - Dyspepsia [Unknown]
  - Dysphonia [Unknown]
  - Gastrooesophageal reflux disease [Unknown]
  - Diverticulum [Unknown]
  - Back disorder [Unknown]
  - Pain [Unknown]
  - Malaise [Unknown]
  - Drug hypersensitivity [Unknown]
  - Drug dose omission [Unknown]
  - Drug ineffective [Unknown]
